APPROVED DRUG PRODUCT: LISINOPRIL AND HYDROCHLOROTHIAZIDE
Active Ingredient: HYDROCHLOROTHIAZIDE; LISINOPRIL
Strength: 12.5MG;10MG
Dosage Form/Route: TABLET;ORAL
Application: A077606 | Product #001 | TE Code: AB
Applicant: AUROBINDO PHARMA LTD
Approved: Mar 14, 2006 | RLD: No | RS: No | Type: RX